FAERS Safety Report 10054714 (Version 2)
Quarter: 2014Q2

REPORT INFORMATION
  Report Type: Spontaneous
  Country: US (occurrence: US)
  Receive Date: 20140402
  Receipt Date: 20140402
  Transmission Date: 20141212
  Serious: No
  Sender: FDA-Public Use
  Company Number: US-AMGEN-USASP2014017178

PATIENT
  Age: 72 Year
  Sex: Female
  Weight: 60.27 kg

DRUGS (4)
  1. ENBREL [Suspect]
     Indication: PSORIATIC ARTHROPATHY
     Dosage: 50 MG, QWK
     Route: 058
     Dates: start: 20131017
  2. METHOTREXATE [Suspect]
     Indication: PSORIATIC ARTHROPATHY
     Dosage: 15 MG, QWK
     Route: 048
     Dates: start: 2012
  3. ALVESCO [Concomitant]
     Dosage: UNK
  4. LEUCOVORIN                         /00566701/ [Concomitant]
     Dosage: 10 MG, QWK
     Route: 048

REACTIONS (2)
  - Bacterial infection [Not Recovered/Not Resolved]
  - Upper respiratory tract infection [Recovered/Resolved]
